FAERS Safety Report 23452177 (Version 1)
Quarter: 2024Q1

REPORT INFORMATION
  Report Type: Report from Study
  Country: US (occurrence: US)
  Receive Date: 20240129
  Receipt Date: 20240129
  Transmission Date: 20240410
  Serious: Yes (Hospitalization)
  Sender: FDA-Public Use
  Company Number: US-OTSUKA-2024_001973

PATIENT
  Sex: Female
  Weight: 65.32 kg

DRUGS (1)
  1. CEDAZURIDINE\DECITABINE [Suspect]
     Active Substance: CEDAZURIDINE\DECITABINE
     Indication: Myelodysplastic syndrome
     Dosage: 1 DF (35 MG DECITABINE AND 100 MG CEDAZURIDINE), QD, FOR 5 DAYS EVERY 28 DAY CYCLE
     Route: 048
     Dates: start: 20231221

REACTIONS (2)
  - Salivary gland calculus [Unknown]
  - Laboratory test abnormal [Unknown]
